FAERS Safety Report 6110742-8 (Version None)
Quarter: 2009Q1

REPORT INFORMATION
  Report Type: 
  Country: None (occurrence: None)
  Receive Date: 20090309
  Receipt Date: 20090224
  Transmission Date: 20090719
  Serious: Yes (Hospitalization)
  Sender: FDA-Public Use
  Company Number: 2009-192143-NL

PATIENT
  Age: 27 Year
  Sex: Female
  Weight: 64.4 kg

DRUGS (1)
  1. NUVARING [Suspect]
     Indication: CONTRACEPTION
     Dosage: 3 WEEKS IN, 1 WEEK OUT
     Dates: start: 20090101

REACTIONS (2)
  - DEPRESSION [None]
  - SUICIDAL IDEATION [None]
